FAERS Safety Report 11309128 (Version 1)
Quarter: 2015Q3

REPORT INFORMATION
  Report Type: Spontaneous
  Country: US (occurrence: US)
  Receive Date: 20150724
  Receipt Date: 20150724
  Transmission Date: 20151125
  Serious: Yes (Other)
  Sender: FDA-Public Use
  Company Number: US-ELI_LILLY_AND_COMPANY-US201507005207

PATIENT
  Age: 59 Year
  Sex: Female

DRUGS (2)
  1. HUMALOG [Suspect]
     Active Substance: INSULIN LISPRO
     Dosage: 4.25 U, SINGLE
     Route: 058
     Dates: start: 20150711
  2. HUMALOG [Suspect]
     Active Substance: INSULIN LISPRO
     Indication: PRODUCT USED FOR UNKNOWN INDICATION
     Route: 058

REACTIONS (4)
  - Nausea [Unknown]
  - Blood glucose increased [Unknown]
  - Ear infection [Unknown]
  - Renal impairment [Unknown]

NARRATIVE: CASE EVENT DATE: 20150711
